FAERS Safety Report 4304437-0 (Version None)
Quarter: 2004Q1

REPORT INFORMATION
  Report Type: 
  Country: None (occurrence: None)
  Receive Date: 20040224
  Receipt Date: 20040211
  Transmission Date: 20041129
  Serious: Yes (Death)
  Sender: FDA-Public Use
  Company Number: 2004008783

PATIENT
  Age: 52 Year
  Sex: Female

DRUGS (2)
  1. AREMIS (SERTRALINE) [Suspect]
     Indication: DEPRESSIVE SYMPTOM
     Dosage: 50 MG (DAILY), ORAL
     Route: 048
     Dates: start: 20031223, end: 20040101
  2. MIRTAZAPINE [Suspect]
     Indication: SLEEP DISORDER
     Dosage: 30 MG (DAILY), ORAL
     Route: 048
     Dates: start: 20031118, end: 20040101

REACTIONS (2)
  - DEPRESSIVE SYMPTOM [None]
  - LOSS OF CONSCIOUSNESS [None]
